FAERS Safety Report 16677558 (Version 1)
Quarter: 2019Q3

REPORT INFORMATION
  Report Type: Spontaneous
  Country: US (occurrence: US)
  Receive Date: 20190621
  Receipt Date: 20190621
  Transmission Date: 20191004
  Serious: Yes (Life-Threatening, Disabling, Other)
  Sender: FDA-Public Use
  Company Number: None

PATIENT
  Age: 70 Year
  Sex: Female
  Weight: 64.86 kg

DRUGS (6)
  1. MINERALS [Concomitant]
     Active Substance: MINERALS
  2. HERBS [Concomitant]
     Active Substance: HERBALS
  3. LEVOTHYROIDISM [Concomitant]
  4. VITAMINS [Concomitant]
     Active Substance: VITAMINS
  5. APIDRA [Suspect]
     Active Substance: INSULIN GLULISINE
     Indication: TYPE 1 DIABETES MELLITUS
     Dates: start: 20050630
  6. LANTUS INSULIN GLARGINE [Suspect]
     Active Substance: INSULIN GLARGINE

REACTIONS (9)
  - Therapeutic response shortened [None]
  - Hyperhidrosis [None]
  - Adverse drug reaction [None]
  - Head injury [None]
  - Injury [None]
  - Drug effect faster than expected [None]
  - Blood glucose decreased [None]
  - Post concussion syndrome [None]
  - Traumatic haemorrhage [None]

NARRATIVE: CASE EVENT DATE: 20050701
